FAERS Safety Report 7027722-0 (Version None)
Quarter: 2010Q4

REPORT INFORMATION
  Report Type: 
  Country: None (occurrence: None)
  Receive Date: 20101004
  Receipt Date: 20100927
  Transmission Date: 20110411
  Serious: Yes (Hospitalization)
  Sender: FDA-Public Use
  Company Number: US-AMGEN-KDL441564

PATIENT
  Sex: Female

DRUGS (1)
  1. ENBREL [Suspect]
     Indication: RHEUMATOID ARTHRITIS
     Route: 058

REACTIONS (6)
  - GINGIVAL ABSCESS [None]
  - INJECTION SITE PAIN [None]
  - PAIN [None]
  - RENAL CANCER [None]
  - SEASONAL ALLERGY [None]
  - SINUSITIS [None]
